FAERS Safety Report 4673532-9 (Version None)
Quarter: 2005Q2

REPORT INFORMATION
  Report Type: 
  Country: None (occurrence: None)
  Receive Date: 20050523
  Receipt Date: 20050510
  Transmission Date: 20051028
  Serious: Yes (Death, Life-Threatening, Other)
  Sender: FDA-Public Use
  Company Number: 200510516BWH

PATIENT
  Age: 61 Year
  Sex: Male
  Weight: 95.2554 kg

DRUGS (13)
  1. AVELOX [Suspect]
     Indication: BRONCHITIS CHRONIC
     Dosage: SEE IMAGE
     Route: 048
     Dates: start: 20050201
  2. AVELOX [Suspect]
     Indication: BRONCHOPNEUMONIA
     Dosage: SEE IMAGE
     Route: 048
     Dates: start: 20050201
  3. AVELOX [Suspect]
     Indication: CHRONIC OBSTRUCTIVE AIRWAYS DISEASE EXACERBATED
     Dosage: SEE IMAGE
     Route: 048
     Dates: start: 20050201
  4. AVELOX [Suspect]
     Indication: BRONCHITIS CHRONIC
     Dosage: SEE IMAGE
     Route: 048
     Dates: start: 20050210
  5. AVELOX [Suspect]
     Indication: BRONCHOPNEUMONIA
     Dosage: SEE IMAGE
     Route: 048
     Dates: start: 20050210
  6. AVELOX [Suspect]
     Indication: CHRONIC OBSTRUCTIVE AIRWAYS DISEASE EXACERBATED
     Dosage: SEE IMAGE
     Route: 048
     Dates: start: 20050210
  7. AVELOX [Suspect]
     Indication: BRONCHITIS CHRONIC
     Dosage: SEE IMAGE
     Route: 048
     Dates: start: 20050314
  8. AVELOX [Suspect]
     Indication: BRONCHOPNEUMONIA
     Dosage: SEE IMAGE
     Route: 048
     Dates: start: 20050314
  9. AVELOX [Suspect]
     Indication: CHRONIC OBSTRUCTIVE AIRWAYS DISEASE EXACERBATED
     Dosage: SEE IMAGE
     Route: 048
     Dates: start: 20050314
  10. COMBIVENT [Concomitant]
  11. FLOVENT [Concomitant]
  12. TAPERING PREDNISONE [Concomitant]
  13. SEROVENT INHALER [Concomitant]

REACTIONS (6)
  - ALLERGY TO ARTHROPOD STING [None]
  - ANAPHYLACTIC REACTION [None]
  - DRUG HYPERSENSITIVITY [None]
  - FEELING ABNORMAL [None]
  - LOSS OF CONSCIOUSNESS [None]
  - SUPRAVENTRICULAR TACHYCARDIA [None]
